FAERS Safety Report 19748748 (Version 10)
Quarter: 2022Q3

REPORT INFORMATION
  Report Type: Spontaneous
  Country: JP (occurrence: JP)
  Receive Date: 20210826
  Receipt Date: 20220913
  Transmission Date: 20221027
  Serious: Yes (Life-Threatening, Hospitalization, Other)
  Sender: FDA-Public Use
  Company Number: JP-AMGEN-JPNSP2021112252

PATIENT
  Age: 5 Year
  Sex: Female
  Weight: 22 kg

DRUGS (21)
  1. BLINCYTO [Suspect]
     Active Substance: BLINATUMOMAB
     Indication: B precursor type acute leukaemia
     Dosage: UNK
     Route: 041
     Dates: start: 20210128, end: 2021
  2. BLINCYTO [Suspect]
     Active Substance: BLINATUMOMAB
     Dosage: 9 MICROGRAM, QD
     Route: 041
     Dates: start: 20210716, end: 20210722
  3. BLINCYTO [Suspect]
     Active Substance: BLINATUMOMAB
     Dosage: 15 MICROGRAM/SQ. METER, QD
     Route: 041
     Dates: start: 20210723, end: 20210812
  4. BLINCYTO [Suspect]
     Active Substance: BLINATUMOMAB
     Dosage: 15 MICROGRAM/SQ. METER, QD
     Route: 041
     Dates: start: 20210827, end: 20210923
  5. BLINCYTO [Suspect]
     Active Substance: BLINATUMOMAB
     Dosage: 15 MICROGRAM/SQ. METER, QD
     Route: 041
     Dates: start: 20211008, end: 20211104
  6. BLINCYTO [Suspect]
     Active Substance: BLINATUMOMAB
     Dosage: 15 MICROGRAM/SQ. METER, QD
     Route: 041
     Dates: start: 20211119, end: 20211209
  7. PROGRAF [Suspect]
     Active Substance: TACROLIMUS
     Indication: Graft versus host disease
     Dosage: 0.05 MILLIGRAM, QD
     Route: 065
     Dates: start: 20210716, end: 20210718
  8. PROGRAF [Suspect]
     Active Substance: TACROLIMUS
     Dosage: 0.025 MILLIGRAM, QD
     Route: 065
     Dates: start: 20210719, end: 20210728
  9. PROGRAF [Suspect]
     Active Substance: TACROLIMUS
     Dosage: 0.05 MILLIGRAM, QD
     Route: 065
     Dates: start: 20210729, end: 20210805
  10. PROGRAF [Suspect]
     Active Substance: TACROLIMUS
     Dosage: 0.075 MILLIGRAM, QD
     Route: 065
     Dates: start: 20210806, end: 20210817
  11. PROGRAF [Suspect]
     Active Substance: TACROLIMUS
     Dosage: 0.05 MILLIGRAM, BID
     Route: 065
     Dates: start: 20210818
  12. PREDONINE [Concomitant]
     Active Substance: PREDNISOLONE
     Indication: Graft versus host disease
     Dosage: 14 MILLIGRAM, DIVIDED IN TO 3 DOSES
     Dates: start: 20210716, end: 20210719
  13. PREDONINE [Concomitant]
     Active Substance: PREDNISOLONE
     Dosage: 11 MILLIGRAM, DIVIDED IN TO 3 DOSES
     Dates: start: 20210720, end: 20210726
  14. PREDONINE [Concomitant]
     Active Substance: PREDNISOLONE
     Dosage: 7 MILLIGRAM, TID
     Dates: start: 20210727, end: 20210731
  15. PREDONINE [Concomitant]
     Active Substance: PREDNISOLONE
     Dosage: 16 MILLIGRAM, DIVIDED IN TO 3 DOSES
     Dates: start: 20210801, end: 20210817
  16. PREDONINE [Concomitant]
     Active Substance: PREDNISOLONE
     Dosage: 5 MILLIGRAM, TID
     Dates: start: 20210818
  17. DEXAMETHASONE [Concomitant]
     Active Substance: DEXAMETHASONE
     Indication: Premedication
     Dosage: UNK
  18. TEMCELL [Concomitant]
     Indication: Prophylaxis against graft versus host disease
     Dosage: UNK
     Dates: start: 20210827
  19. CILASTATIN SODIUM\IMIPENEM [Concomitant]
     Active Substance: CILASTATIN SODIUM\IMIPENEM
     Dosage: UNK
  20. GRANULOCYTE COLONY-STIMULATING FACTOR NOS [Concomitant]
     Active Substance: GRANULOCYTE COLONY-STIMULATING FACTOR NOS
     Indication: Myelosuppression
     Dosage: UNK
     Dates: start: 20211117
  21. DEXAMETHASONE SODIUM PHOSPHATE [Concomitant]
     Active Substance: DEXAMETHASONE SODIUM PHOSPHATE
     Indication: Prophylaxis
     Dosage: 9.9 MILLIGRAM, QD
     Dates: start: 20210716, end: 20210716

REACTIONS (6)
  - Central nervous system leukaemia [Recovered/Resolved]
  - Leukaemic infiltration gingiva [Not Recovered/Not Resolved]
  - Graft versus host disease in skin [Recovered/Resolved]
  - Pyrexia [Recovered/Resolved]
  - Neutropenia [Recovered/Resolved]
  - Device related infection [Recovered/Resolved]

NARRATIVE: CASE EVENT DATE: 20210716
